FAERS Safety Report 4694285-4 (Version None)
Quarter: 2005Q2

REPORT INFORMATION
  Report Type: 
  Country: None (occurrence: None)
  Receive Date: 20050620
  Receipt Date: 20040128
  Transmission Date: 20051028
  Serious: Yes (Hospitalization)
  Sender: FDA-Public Use
  Company Number: PHHO2004ES01551

PATIENT
  Age: 72 Year
  Sex: Male

DRUGS (3)
  1. EXELON [Suspect]
     Indication: DEMENTIA ALZHEIMER'S TYPE
     Dosage: 6 MG / DAY
     Route: 048
     Dates: start: 20021002, end: 20030620
  2. SERTRALINE HCL [Concomitant]
  3. BROMOCRIPTINE [Concomitant]

REACTIONS (3)
  - DECUBITUS ULCER [None]
  - INFECTION [None]
  - PYREXIA [None]
